FAERS Safety Report 9548028 (Version 1)
Quarter: 2013Q3

REPORT INFORMATION
  Report Type: Spontaneous
  Country: FR (occurrence: FR)
  Receive Date: 20130924
  Receipt Date: 20130924
  Transmission Date: 20140515
  Serious: Yes (Hospitalization, Other)
  Sender: FDA-Public Use
  Company Number: FR-UCBSA-097787

PATIENT
  Age: 58 Year
  Sex: Female

DRUGS (7)
  1. KEPPRA [Suspect]
     Indication: STATUS EPILEPTICUS
     Dosage: UNKNOWN DOSE
     Route: 048
     Dates: start: 20130628, end: 20130720
  2. DI-HYDAN [Suspect]
     Indication: STATUS EPILEPTICUS
     Dosage: UNKNOWN DOSE
     Route: 048
     Dates: start: 20130626, end: 20130720
  3. URBANYL [Concomitant]
     Dosage: UNKNOWN DOSE
     Dates: start: 20130628, end: 20130720
  4. SOLIAN [Concomitant]
     Dosage: 100 MG IN THE MORNING AND 600 MG IN THE EVENING
  5. ZOLOFT [Concomitant]
     Dosage: 50 MG IN THE MORNING AND 100 MG IN THE EVENING
  6. URSOLVAN [Concomitant]
     Dosage: 2 TABLETS
  7. SERESTA [Concomitant]
     Dosage: 2 TABLETS DAILY

REACTIONS (5)
  - Drug reaction with eosinophilia and systemic symptoms [Recovered/Resolved]
  - Rash [Recovered/Resolved]
  - Pyrexia [Recovered/Resolved]
  - Liver injury [Recovered/Resolved]
  - Leukopenia [Recovered/Resolved]
